FAERS Safety Report 16445549 (Version 2)
Quarter: 2019Q2

REPORT INFORMATION
  Report Type: Spontaneous
  Country: US (occurrence: US)
  Receive Date: 20190618
  Receipt Date: 20190626
  Transmission Date: 20190711
  Serious: Yes (Disabling, Other)
  Sender: FDA-Public Use
  Company Number: US-PFIZER INC-2019253660

PATIENT
  Age: 85 Year
  Sex: Male
  Weight: 61.22 kg

DRUGS (3)
  1. PROTONIX [Suspect]
     Active Substance: PANTOPRAZOLE SODIUM
     Indication: ANAEMIA
     Dosage: UNK
     Dates: start: 201809
  2. FERROUS SULFATE. [Concomitant]
     Active Substance: FERROUS SULFATE
  3. PANTOPRAZOLE TORRENT [Suspect]
     Active Substance: PANTOPRAZOLE SODIUM

REACTIONS (6)
  - Product use in unapproved indication [Unknown]
  - Asthenia [Unknown]
  - Gait disturbance [Unknown]
  - Fatigue [Unknown]
  - Muscular weakness [Unknown]
  - Off label use [Unknown]
